FAERS Safety Report 24297042 (Version 1)
Quarter: 2024Q3

REPORT INFORMATION
  Report Type: Spontaneous
  Country: GR (occurrence: GR)
  Receive Date: 20240909
  Receipt Date: 20240909
  Transmission Date: 20241017
  Serious: Yes (Death)
  Sender: ARGENX BVBA
  Company Number: GR-ARGENX-2024-ARGX-GR007542

PATIENT

DRUGS (1)
  1. VYVGART [Suspect]
     Active Substance: EFGARTIGIMOD ALFA-FCAB
     Indication: Myasthenia gravis
     Dosage: 1000 MG, IN CYCLES OF 4 ONCE-WEEKLY INJECTIONS
     Route: 058

REACTIONS (1)
  - COVID-19 [Fatal]
